FAERS Safety Report 19615109 (Version 1)
Quarter: 2021Q3

REPORT INFORMATION
  Report Type: Spontaneous
  Country: CN (occurrence: CN)
  Receive Date: 20210727
  Receipt Date: 20210727
  Transmission Date: 20211014
  Serious: Yes (Death, Hospitalization, Other)
  Sender: FDA-Public Use
  Company Number: CN-009507513-2107CHN006812

PATIENT
  Age: 59 Year
  Sex: Male
  Weight: 65 kg

DRUGS (3)
  1. KEYTRUDA [Suspect]
     Active Substance: PEMBROLIZUMAB
     Indication: LUNG NEOPLASM MALIGNANT
     Dosage: 200 MG, ONE TIME ONE DAY
     Route: 041
     Dates: start: 20210202, end: 20210416
  2. PACLITAXEL. [Suspect]
     Active Substance: PACLITAXEL
     Indication: LUNG NEOPLASM MALIGNANT
     Dosage: UNK
     Dates: start: 20210201
  3. NEDAPLATIN [Suspect]
     Active Substance: NEDAPLATIN
     Indication: LUNG NEOPLASM MALIGNANT
     Dosage: UNK
     Dates: start: 20210201

REACTIONS (5)
  - Hypopituitarism [Recovered/Resolved with Sequelae]
  - Adrenal insufficiency [Fatal]
  - Inappropriate schedule of product administration [Unknown]
  - Enteritis [Recovered/Resolved with Sequelae]
  - Immune-mediated lung disease [Recovered/Resolved with Sequelae]

NARRATIVE: CASE EVENT DATE: 20210209
